FAERS Safety Report 15703340 (Version 2)
Quarter: 2018Q4

REPORT INFORMATION
  Report Type: Report from Study
  Country: None (occurrence: US)
  Receive Date: 20181210
  Receipt Date: 20181226
  Transmission Date: 20190205
  Serious: Yes (Other)
  Sender: FDA-Public Use
  Company Number: US-ABBVIE-17K-163-1852049-00

PATIENT
  Sex: Female

DRUGS (1)
  1. HUMIRA [Suspect]
     Active Substance: ADALIMUMAB
     Indication: CROHN^S DISEASE
     Route: 058

REACTIONS (7)
  - Injection site pain [Unknown]
  - Gastrointestinal polyp [Recovering/Resolving]
  - Dizziness [Unknown]
  - Cough [Recovering/Resolving]
  - Abdominal pain [Recovered/Resolved]
  - Sinusitis [Unknown]
  - Oropharyngeal pain [Unknown]
